FAERS Safety Report 18831909 (Version 2)
Quarter: 2021Q1

REPORT INFORMATION
  Report Type: Spontaneous
  Country: US (occurrence: US)
  Receive Date: 20210201
  Receipt Date: 20210218
  Transmission Date: 20210419
  Serious: Yes (Hospitalization, Other)
  Sender: FDA-Public Use
  Company Number: US-ABBVIE-20K-163-3696895-00

PATIENT
  Age: 75 Year
  Sex: Male
  Weight: 67.19 kg

DRUGS (6)
  1. HUMIRA [Suspect]
     Active Substance: ADALIMUMAB
     Indication: VISUAL IMPAIRMENT
     Route: 058
     Dates: start: 202010, end: 202101
  2. HUMIRA [Suspect]
     Active Substance: ADALIMUMAB
     Indication: UVEITIS
  3. HUMIRA [Suspect]
     Active Substance: ADALIMUMAB
     Indication: EYE INFLAMMATION
  4. HUMIRA [Suspect]
     Active Substance: ADALIMUMAB
     Indication: EYE INFLAMMATION
  5. PREDNISONE. [Concomitant]
     Active Substance: PREDNISONE
     Indication: PRODUCT USED FOR UNKNOWN INDICATION
     Dates: end: 202102
  6. HUMIRA [Suspect]
     Active Substance: ADALIMUMAB
     Indication: GLAUCOMA

REACTIONS (8)
  - Weight increased [Recovered/Resolved]
  - Off label use [Unknown]
  - Reading disorder [Not Recovered/Not Resolved]
  - Device issue [Recovered/Resolved]
  - Fluid retention [Unknown]
  - Eye inflammation [Not Recovered/Not Resolved]
  - Blood glucose increased [Not Recovered/Not Resolved]
  - Incorrect dose administered [Recovered/Resolved]

NARRATIVE: CASE EVENT DATE: 20201208
